FAERS Safety Report 6010508-3 (Version None)
Quarter: 2008Q4

REPORT INFORMATION
  Report Type: 
  Country: None (occurrence: None)
  Receive Date: 20081218
  Receipt Date: 20081210
  Transmission Date: 20090506
  Serious: Yes (Hospitalization)
  Sender: FDA-Public Use
  Company Number: JP-ASTRAZENECA-2008SE05743

PATIENT
  Age: 58 Year
  Sex: Male

DRUGS (3)
  1. BLOPRESS TABLETS 8 [Suspect]
     Route: 048
     Dates: start: 20081209, end: 20081209
  2. AMLODIN [Concomitant]
     Route: 048
  3. CARDENALIN [Concomitant]
     Route: 048

REACTIONS (2)
  - INTENTIONAL OVERDOSE [None]
  - RENAL FAILURE [None]
